FAERS Safety Report 4694006-5 (Version None)
Quarter: 2005Q2

REPORT INFORMATION
  Report Type: 
  Country: None (occurrence: None)
  Receive Date: 20050616
  Receipt Date: 20050530
  Transmission Date: 20051028
  Serious: Yes (Other)
  Sender: FDA-Public Use
  Company Number: AVE_0037_2005

PATIENT
  Age: 50 Year
  Sex: Male

DRUGS (7)
  1. NICOTINE TRANSDERMAL SYSTEM [Suspect]
     Indication: SMOKING CESSATION THERAPY
     Dosage: 7 MG QDAY TD
     Route: 062
     Dates: start: 20050301, end: 20050414
  2. NICOTINE TRANSDERMAL SYSTEM [Suspect]
     Indication: SMOKING CESSATION THERAPY
     Dosage: 21 MG QDAY TD
     Route: 062
     Dates: start: 20050224, end: 20050301
  3. NICOTINE TRANSDERMAL SYSTEM [Suspect]
     Indication: SMOKING CESSATION THERAPY
     Dosage: 14 MG QDAY TD
     Route: 062
     Dates: start: 20050301, end: 20050401
  4. ARTHROTEC [Concomitant]
  5. ULTRACET [Concomitant]
  6. PERCOCET [Concomitant]
  7. ZANTAC [Concomitant]

REACTIONS (1)
  - FACIAL PALSY [None]
